FAERS Safety Report 17513428 (Version 3)
Quarter: 2021Q1

REPORT INFORMATION
  Report Type: Report from Study
  Country: CA (occurrence: CA)
  Receive Date: 20200306
  Receipt Date: 20210122
  Transmission Date: 20210419
  Serious: Yes (Hospitalization)
  Sender: FDA-Public Use
  Company Number: CA-BIOGEN-2020BI00844567

PATIENT
  Age: 5 Month
  Sex: Male

DRUGS (5)
  1. SPINRAZA [Suspect]
     Active Substance: NUSINERSEN
     Indication: SPINAL MUSCULAR ATROPHY
     Dosage: 12 MILLIGRAM/MILLILITER?DAYS 0, 14, 28, 58, THEN EVERY 4 MONTHS THEREAFTER
     Route: 037
     Dates: start: 20200103, end: 20200116
  2. PALIVIZUMAB [Concomitant]
     Active Substance: PALIVIZUMAB
     Indication: PROPHYLAXIS
     Dosage: 29?FEB?2020 AND 28?MAR?2020
     Route: 065
     Dates: start: 20200201
  3. SPINRAZA [Suspect]
     Active Substance: NUSINERSEN
     Dosage: 12 MILLIGRAM/MILLILITER?DAYS 0, 14, 28, 58, THEN EVERY 4 MONTHS THEREAFTER
     Route: 037
     Dates: start: 20200204
  4. CHOLECALCIFEROL [Concomitant]
     Active Substance: CHOLECALCIFEROL
     Indication: PRODUCT USED FOR UNKNOWN INDICATION
     Route: 048
  5. SPINRAZA [Suspect]
     Active Substance: NUSINERSEN
     Dosage: 12 MILLIGRAM/MILLILITER?DAYS 0, 14, 28, 58, THEN EVERY 4 MONTHS THEREAFTER
     Route: 037
     Dates: start: 20200103

REACTIONS (4)
  - Respiratory distress [Recovered/Resolved]
  - Pneumonia influenzal [Unknown]
  - Human bocavirus infection [Unknown]
  - Bacterial disease carrier [Unknown]

NARRATIVE: CASE EVENT DATE: 20200130
